FAERS Safety Report 13739203 (Version 2)
Quarter: 2018Q2

REPORT INFORMATION
  Report Type: Report from Study
  Country: US (occurrence: US)
  Receive Date: 20170710
  Receipt Date: 20180627
  Transmission Date: 20180711
  Serious: Yes (Other)
  Sender: FDA-Public Use
  Company Number: US-SAOL THERAPEUTICS-2017SAO00777

PATIENT
  Age: 64 Year
  Sex: Female
  Weight: 72.56 kg

DRUGS (30)
  1. COMPOUNDED BACLOFEN [Suspect]
     Active Substance: BACLOFEN
     Dosage: 329.97 ?G, \DAY
     Route: 037
     Dates: start: 20160414, end: 20160414
  2. DILAUDID [Suspect]
     Active Substance: HYDROMORPHONE HYDROCHLORIDE
     Dosage: 4.1085 MG, \DAY
     Route: 037
     Dates: start: 20151105, end: 20160107
  3. DILAUDID [Suspect]
     Active Substance: HYDROMORPHONE HYDROCHLORIDE
     Dosage: 4.5010 MG, \DAY
     Route: 037
     Dates: start: 20160831
  4. CLONIDINE. [Suspect]
     Active Substance: CLONIDINE
     Dosage: 0.98 ?G, CONTINUOUS/HR
     Route: 037
     Dates: start: 20180208
  5. CLONIDINE. [Suspect]
     Active Substance: CLONIDINE
     Dosage: 328.68 ?G, \DAY
     Route: 037
     Dates: start: 20151105, end: 20160107
  6. COMPOUNDED BACLOFEN [Suspect]
     Active Substance: BACLOFEN
     Dosage: 0.98 ?G, CONTINUOUS/HR
     Route: 037
     Dates: start: 20180208
  7. DILAUDID [Suspect]
     Active Substance: HYDROMORPHONE HYDROCHLORIDE
     Dosage: 1.1255 MG, \DAY
     Route: 037
     Dates: end: 20180208
  8. CLONIDINE. [Suspect]
     Active Substance: CLONIDINE
     Dosage: 395.96 ?G, \DAY
     Route: 037
     Dates: start: 20160414, end: 20160414
  9. CLONIDINE. [Suspect]
     Active Substance: CLONIDINE
     Dosage: UNK
     Route: 037
     Dates: start: 20160609, end: 2016
  10. COMPOUNDED BACLOFEN [Suspect]
     Active Substance: BACLOFEN
     Dosage: 300.06 ?G, \DAY
     Route: 037
     Dates: start: 20160414
  11. COMPOUNDED BACLOFEN [Suspect]
     Active Substance: BACLOFEN
     Dosage: 300.06 ?G, \DAY
     Route: 037
     Dates: start: 20160831
  12. CLONIDINE. [Suspect]
     Active Substance: CLONIDINE
     Dosage: 360.08 ?G, \DAY
     Route: 037
     Dates: start: 20160831
  13. COMPOUNDED BACLOFEN [Suspect]
     Active Substance: BACLOFEN
     Dosage: 110 ?G, \DAY
     Route: 037
  14. DILAUDID [Suspect]
     Active Substance: HYDROMORPHONE HYDROCHLORIDE
     Dosage: 4.9496 MG, \DAY
     Route: 037
     Dates: start: 20160414, end: 20160414
  15. DILAUDID [Suspect]
     Active Substance: HYDROMORPHONE HYDROCHLORIDE
     Dosage: 4.5010 MG, \DAY
     Route: 037
     Dates: start: 20160414
  16. CLONIDINE. [Suspect]
     Active Substance: CLONIDINE
     Dosage: 110 ?G, \DAY
     Route: 037
  17. COMPOUNDED BACLOFEN [Suspect]
     Active Substance: BACLOFEN
     Dosage: 75.03 ?G, \DAY
     Route: 037
     Dates: end: 20180208
  18. DILAUDID [Suspect]
     Active Substance: HYDROMORPHONE HYDROCHLORIDE
     Dosage: UNK
     Route: 037
     Dates: start: 20160609, end: 2016
  19. CLONIDINE. [Suspect]
     Active Substance: CLONIDINE
     Dosage: 396.14 ?G, \DAY
     Route: 037
     Dates: start: 20160804, end: 20160831
  20. DILAUDID [Suspect]
     Active Substance: HYDROMORPHONE HYDROCHLORIDE
     Dosage: 0.0122 MG, CONTINUOUS/HR
     Route: 037
     Dates: start: 20180208
  21. DILAUDID [Suspect]
     Active Substance: HYDROMORPHONE HYDROCHLORIDE
     Dosage: 1.375 MG, \DAY
     Route: 037
  22. COMPOUNDED BACLOFEN [Suspect]
     Active Substance: BACLOFEN
     Dosage: 273.90 ?G, \DAY
     Route: 037
     Dates: start: 20151105, end: 20160107
  23. COMPOUNDED BACLOFEN [Suspect]
     Active Substance: BACLOFEN
     Dosage: 300.00 ?G, \DAY
     Route: 037
     Dates: start: 20160107
  24. COMPOUNDED BACLOFEN [Suspect]
     Active Substance: BACLOFEN
     Dosage: UNK
     Route: 037
     Dates: start: 20160609, end: 2016
  25. COMPOUNDED BACLOFEN [Suspect]
     Active Substance: BACLOFEN
     Dosage: 330.11 ?G, \DAY
     Route: 037
     Dates: start: 20160804, end: 20160831
  26. CLONIDINE. [Suspect]
     Active Substance: CLONIDINE
     Dosage: 360.08 ?G, \DAY
     Route: 037
     Dates: start: 20160414
  27. CLONIDINE. [Suspect]
     Active Substance: CLONIDINE
     Dosage: 90.04 ?G, \DAY
     Route: 037
     Dates: end: 20180208
  28. DILAUDID [Suspect]
     Active Substance: HYDROMORPHONE HYDROCHLORIDE
     Dosage: 4.5001 MG, \DAY
     Route: 037
     Dates: start: 20160107
  29. DILAUDID [Suspect]
     Active Substance: HYDROMORPHONE HYDROCHLORIDE
     Dosage: 4.9517 MG, \DAY
     Route: 037
     Dates: start: 20160804, end: 20160831
  30. CLONIDINE. [Suspect]
     Active Substance: CLONIDINE
     Dosage: 360.01 UNK, UNK
     Route: 037
     Dates: start: 20160107

REACTIONS (7)
  - Therapeutic response decreased [Not Recovered/Not Resolved]
  - Implant site pain [Not Recovered/Not Resolved]
  - Implant site mass [Not Recovered/Not Resolved]
  - Asthenia [Recovered/Resolved]
  - Overdose [Recovered/Resolved]
  - Pain [Not Recovered/Not Resolved]
  - Hyperaesthesia [Not Recovered/Not Resolved]

NARRATIVE: CASE EVENT DATE: 20160107
